FAERS Safety Report 21077670 (Version 1)
Quarter: 2022Q3

REPORT INFORMATION
  Report Type: Report from Study
  Country: IL (occurrence: IL)
  Receive Date: 20220713
  Receipt Date: 20220713
  Transmission Date: 20221027
  Serious: Yes (Other)
  Sender: FDA-Public Use
  Company Number: IL-TAKEDA-2022TUS046843

PATIENT
  Sex: Female

DRUGS (1)
  1. VELAGLUCERASE ALFA [Suspect]
     Active Substance: VELAGLUCERASE ALFA
     Indication: Gaucher^s disease
     Dosage: 3 DOSAGE FORM, Q2WEEKS
     Route: 042
     Dates: start: 20181119

REACTIONS (1)
  - Thrombosis [Not Recovered/Not Resolved]
